FAERS Safety Report 6810861-4 (Version None)
Quarter: 2010Q2

REPORT INFORMATION
  Report Type: 
  Country: None (occurrence: None)
  Receive Date: 20100630
  Receipt Date: 20080430
  Transmission Date: 20101027
  Serious: No
  Sender: FDA-Public Use
  Company Number: US-PFIZER INC-2008038217

PATIENT
  Sex: Female
  Weight: 48.636 kg

DRUGS (3)
  1. ESTRING [Suspect]
     Indication: VULVOVAGINAL DRYNESS
     Dates: start: 20080421, end: 20080424
  2. ESTRING [Suspect]
     Indication: URINARY TRACT DISORDER
  3. NORGESIC [Concomitant]
     Indication: HEADACHE

REACTIONS (2)
  - HEADACHE [None]
  - NAUSEA [None]
